FAERS Safety Report 20044438 (Version 1)
Quarter: 2021Q4

REPORT INFORMATION
  Report Type: Spontaneous
  Country: US (occurrence: US)
  Receive Date: 20211108
  Receipt Date: 20211108
  Transmission Date: 20220303
  Serious: No
  Sender: FDA-Public Use
  Company Number: US-GSKCCFUS-Case-01210563_AE-70889

PATIENT
  Age: 73 Year
  Sex: Male

DRUGS (1)
  1. TRELEGY ELLIPTA [Suspect]
     Active Substance: FLUTICASONE FUROATE\UMECLIDINIUM BROMIDE\VILANTEROL TRIFENATATE
     Indication: Lung disorder
     Dosage: 1 PUFF(S), QD, 100/62.5/25MCG
     Route: 055
     Dates: start: 20211102

REACTIONS (8)
  - Psychomotor hyperactivity [Not Recovered/Not Resolved]
  - Agitation [Unknown]
  - Nervousness [Unknown]
  - Productive cough [Unknown]
  - Abnormal dreams [Unknown]
  - Product label confusion [Unknown]
  - Feeling abnormal [Unknown]
  - Anxiety [Unknown]
